FAERS Safety Report 7219509-0 (Version None)
Quarter: 2011Q1

REPORT INFORMATION
  Report Type: 
  Country: None (occurrence: None)
  Receive Date: 20110111
  Receipt Date: 20110106
  Transmission Date: 20110831
  Serious: Yes (Hospitalization)
  Sender: FDA-Public Use
  Company Number: US-SANOFI-AVENTIS-2011SA001050

PATIENT
  Age: 57 Year
  Sex: Female

DRUGS (8)
  1. ACETYLSALICYLIC ACID SRT [Concomitant]
  2. ISOSORBIDE DINITRATE [Concomitant]
  3. MULTAQ [Suspect]
     Indication: ATRIAL FIBRILLATION
     Route: 048
     Dates: start: 20101231, end: 20110103
  4. JANUVIA [Concomitant]
  5. CARVEDILOL [Concomitant]
  6. BENAZEPRIL [Concomitant]
  7. WARFARIN [Concomitant]
  8. ESOMEPRAZOLE [Concomitant]

REACTIONS (6)
  - MUSCULOSKELETAL PAIN [None]
  - DIZZINESS [None]
  - ABDOMINAL PAIN UPPER [None]
  - DYSPNOEA [None]
  - DIARRHOEA [None]
  - DECREASED APPETITE [None]
